FAERS Safety Report 8157079-3 (Version None)
Quarter: 2012Q1

REPORT INFORMATION
  Report Type: 
  Country: None (occurrence: None)
  Receive Date: 20120222
  Receipt Date: 20120213
  Transmission Date: 20120608
  Serious: Yes (Disabling, Other)
  Sender: FDA-Public Use
  Company Number: US-ELI_LILLY_AND_COMPANY-US201202001763

PATIENT
  Sex: Female

DRUGS (4)
  1. HUMULIN 70/30 [Suspect]
     Dosage: 5 U, EACH EVENING
     Dates: start: 20100101
  2. HUMULIN 70/30 [Suspect]
     Indication: TYPE 2 DIABETES MELLITUS
     Dosage: 20 U, EACH MORNING
     Dates: start: 20100101
  3. CORTICOSTEROIDS [Concomitant]
  4. NOVOLOG [Concomitant]

REACTIONS (12)
  - POLYPECTOMY [None]
  - MEMORY IMPAIRMENT [None]
  - BLOOD GLUCOSE INCREASED [None]
  - VISUAL IMPAIRMENT [None]
  - VAGINAL HAEMORRHAGE [None]
  - MALAISE [None]
  - BONE DISORDER [None]
  - ANXIETY [None]
  - UTERINE DILATION AND CURETTAGE [None]
  - DRUG DOSE OMISSION [None]
  - STRESS [None]
  - DIABETES MELLITUS INADEQUATE CONTROL [None]
